FAERS Safety Report 7744778-8 (Version None)
Quarter: 2011Q3

REPORT INFORMATION
  Report Type: 
  Country: None (occurrence: None)
  Receive Date: 20110912
  Receipt Date: 20110912
  Transmission Date: 20111222
  Serious: Yes (Other)
  Sender: FDA-Public Use
  Company Number: None

PATIENT
  Age: 53 Year
  Sex: Female
  Weight: 63.502 kg

DRUGS (1)
  1. CYMBALTA [Suspect]
     Indication: GENERALISED ANXIETY DISORDER
     Dosage: 60 MG

REACTIONS (6)
  - WEIGHT INCREASED [None]
  - HEPATIC STEATOSIS [None]
  - CONSTIPATION [None]
  - ABDOMINAL PAIN UPPER [None]
  - VOMITING [None]
  - HEPATIC ENZYME INCREASED [None]
